FAERS Safety Report 6342854-8 (Version None)
Quarter: 2009Q3

REPORT INFORMATION
  Report Type: 
  Country: None (occurrence: None)
  Receive Date: 20090908
  Receipt Date: 20090901
  Transmission Date: 20100115
  Serious: Yes (Other)
  Sender: FDA-Public Use
  Company Number: US-JNJFOC-20090901220

PATIENT
  Sex: Female
  Weight: 83.46 kg

DRUGS (1)
  1. DURAGESIC-100 [Suspect]
     Indication: SYSTEMIC LUPUS ERYTHEMATOSUS
     Route: 062
     Dates: start: 20060101

REACTIONS (5)
  - DRUG DOSE OMISSION [None]
  - FALL [None]
  - PRODUCT QUALITY ISSUE [None]
  - WITHDRAWAL SYNDROME [None]
  - WRIST FRACTURE [None]
